FAERS Safety Report 5081460-2 (Version None)
Quarter: 2006Q3

REPORT INFORMATION
  Report Type: 
  Country: None (occurrence: None)
  Receive Date: 20060810
  Receipt Date: 20060724
  Transmission Date: 20061208
  Serious: Yes (Death, Hospitalization)
  Sender: FDA-Public Use
  Company Number: IT200607004191

PATIENT
  Age: 63 Year
  Sex: Male
  Weight: 95 kg

DRUGS (7)
  1. PEMETREXED (PEMETREXED UNKNOWN FORMULATION) UNKNOWN [Suspect]
     Indication: PLEURAL MESOTHELIOMA
     Dosage: 950 MG, OTHER, INTRAVENOUS
     Route: 042
     Dates: start: 20060107, end: 20060217
  2. CISPLATIN [Suspect]
     Indication: PLEURAL MESOTHELIOMA
     Dosage: 40 MG, UNK, INTRAVENOUS
     Route: 042
     Dates: start: 20060107, end: 20060217
  3. *RADIATION (*RADIATION) UNKNOWN [Suspect]
     Indication: PLEURAL MESOTHELIOMA
     Dates: start: 20060522, end: 20060710
  4. TORADOL [Concomitant]
  5. OMEPRAZOLE [Concomitant]
  6. ENOXAPARIN SODIUM [Concomitant]
  7. FERROGRAD (FERROUS SULFATE EXSICCATED) [Concomitant]

REACTIONS (14)
  - ALANINE AMINOTRANSFERASE INCREASED [None]
  - ASPARTATE AMINOTRANSFERASE INCREASED [None]
  - BLOOD BILIRUBIN INCREASED [None]
  - BLOOD CALCIUM DECREASED [None]
  - BLOOD LACTATE DEHYDROGENASE INCREASED [None]
  - BLOOD POTASSIUM INCREASED [None]
  - BRONCHIAL FISTULA [None]
  - EMPYEMA [None]
  - HAEMATOCRIT DECREASED [None]
  - HAEMOGLOBIN DECREASED [None]
  - HYDROPNEUMOTHORAX [None]
  - MEAN CELL VOLUME DECREASED [None]
  - NEUTROPHIL PERCENTAGE INCREASED [None]
  - SUBCUTANEOUS EMPHYSEMA [None]
